FAERS Safety Report 20458378 (Version 2)
Quarter: 2022Q1

REPORT INFORMATION
  Report Type: Report from Study
  Country: US (occurrence: US)
  Receive Date: 20220211
  Receipt Date: 20220215
  Transmission Date: 20220423
  Serious: Yes (Other)
  Sender: FDA-Public Use
  Company Number: US-BRISTOL-MYERS SQUIBB COMPANY-BMS-2022-018237

PATIENT
  Age: 58 Year
  Sex: Female

DRUGS (1)
  1. NIVOLUMAB [Suspect]
     Active Substance: NIVOLUMAB
     Indication: Glioblastoma
     Dosage: 3 MILLIGRAM/KILOGRAM
     Route: 042
     Dates: start: 20211220

REACTIONS (1)
  - Hemiparesis [Unknown]

NARRATIVE: CASE EVENT DATE: 20220204
